FAERS Safety Report 7743404-1 (Version None)
Quarter: 2011Q3

REPORT INFORMATION
  Report Type: 
  Country: None (occurrence: None)
  Receive Date: 20110912
  Receipt Date: 20110831
  Transmission Date: 20111222
  Serious: Yes (Hospitalization, Other)
  Sender: FDA-Public Use
  Company Number: PHHY2011IN78240

PATIENT
  Age: 11 Year
  Sex: Male
  Weight: 27 kg

DRUGS (6)
  1. PREDNISOLONE [Concomitant]
     Dosage: 0.5 MG, PER KG PER DAY
  2. MEBENDAZOLE [Concomitant]
  3. IMATINIB MESYLATE [Suspect]
     Dosage: 400 MG, DAY
     Route: 065
  4. METHYLPREDNISOLONE [Concomitant]
     Dosage: 30 MG, PER KG/DAY
     Route: 065
  5. DIETHYLCARBAMAZINE [Concomitant]
     Dosage: UNK UKN, UNK
     Route: 065
  6. PREDNISOLONE [Concomitant]
     Dosage: 1 MG, PER KG PER DAY
     Route: 065

REACTIONS (6)
  - PYREXIA [None]
  - RESPIRATORY DISTRESS [None]
  - ABDOMINAL PAIN [None]
  - VOMITING [None]
  - DRUG INEFFECTIVE [None]
  - EOSINOPHILIA [None]
